FAERS Safety Report 11499230 (Version 1)
Quarter: 2015Q3

REPORT INFORMATION
  Report Type: Report from Study
  Country: BR (occurrence: BR)
  Receive Date: 20150913
  Receipt Date: 20150913
  Transmission Date: 20151125
  Serious: Yes (Death, Hospitalization)
  Sender: FDA-Public Use
  Company Number: PHHY2015BR110299

PATIENT
  Sex: Female

DRUGS (3)
  1. EXELON PATCH [Suspect]
     Active Substance: RIVASTIGMINE
     Indication: CONFUSIONAL STATE
     Dosage: 1 DF, QD (^SMALLER^, 1 PATCH PER DAY AFTER TAKING A BATH)
     Route: 062
  2. EXELON PATCH [Suspect]
     Active Substance: RIVASTIGMINE
     Dosage: UNK (EXELON PATCH 15)
     Route: 062
  3. EXELON PATCH [Suspect]
     Active Substance: RIVASTIGMINE
     Indication: MEMORY IMPAIRMENT
     Dosage: UNK (^MEDIUM^ PATCH)
     Route: 062

REACTIONS (4)
  - Pulmonary oedema [Fatal]
  - Drug ineffective [Unknown]
  - Pain [Fatal]
  - Colitis [Fatal]
